FAERS Safety Report 14298550 (Version 3)
Quarter: 2018Q1

REPORT INFORMATION
  Report Type: Spontaneous
  Country: US (occurrence: US)
  Receive Date: 20171218
  Receipt Date: 20180328
  Transmission Date: 20180509
  Serious: No
  Sender: FDA-Public Use
  Company Number: US-ACTELION-A-NJ2017-164334

PATIENT
  Age: 24 Year
  Sex: Male

DRUGS (2)
  1. VELETRI [Suspect]
     Active Substance: EPOPROSTENOL
     Indication: PULMONARY ARTERIAL HYPERTENSION
     Dosage: 29.5 NG/KG, PER MIN
     Route: 042
     Dates: start: 20171207
  2. OPSUMIT [Suspect]
     Active Substance: MACITENTAN
     Indication: PULMONARY ARTERIAL HYPERTENSION
     Dosage: 10 MG, QD
     Route: 048
     Dates: start: 20160603

REACTIONS (4)
  - Fatigue [Unknown]
  - Photophobia [Unknown]
  - Nausea [Unknown]
  - Headache [Unknown]
